FAERS Safety Report 9059682 (Version 1)
Quarter: 2013Q1

REPORT INFORMATION
  Report Type: Spontaneous
  Country: BR (occurrence: BR)
  Receive Date: 20130212
  Receipt Date: 20130212
  Transmission Date: 20140127
  Serious: Yes (Hospitalization, Other)
  Sender: FDA-Public Use
  Company Number: BR-ABBOTT-12P-020-1021629-00

PATIENT
  Age: 49 None
  Sex: Female
  Weight: 70 kg

DRUGS (6)
  1. DEPAKOTE [Suspect]
     Indication: GRAND MAL CONVULSION
     Dosage: 1 TAB AT MORNING
     Route: 048
  2. DEPAKOTE ER [Suspect]
     Indication: EPILEPSY
     Dosage: 1 TAB AT MORNING AND 1 TAB AT EVENING
     Route: 048
  3. PURAN T4 [Concomitant]
     Indication: THYROID DISORDER
     Dosage: 1 TAB AT MONRING IN FASTING
     Route: 048
  4. RIVOTRIL [Concomitant]
     Indication: ANXIOLYTIC THERAPY
     Dosage: 1 TABLET OR 0.5 TABLET DAILY
     Route: 048
  5. TEGRETOL [Concomitant]
     Indication: EPILEPSY
     Route: 048
     Dates: start: 2002
  6. TEGRETOL [Concomitant]
     Dosage: 1 TAB AT MONRING AND 1 TAB AT EVENING
     Route: 048

REACTIONS (8)
  - Convulsion [Recovered/Resolved]
  - Convulsion [Recovered/Resolved]
  - Heart rate increased [Recovered/Resolved]
  - Stress [Recovered/Resolved]
  - Myalgia [Unknown]
  - Musculoskeletal stiffness [Unknown]
  - Convulsion [Not Recovered/Not Resolved]
  - Malaise [Unknown]
